FAERS Safety Report 7265578-1 (Version None)
Quarter: 2011Q1

REPORT INFORMATION
  Report Type: 
  Country: None (occurrence: None)
  Receive Date: 20110131
  Receipt Date: 20110121
  Transmission Date: 20110831
  Serious: Yes (Death)
  Sender: FDA-Public Use
  Company Number: US-ROCHE-755617

PATIENT
  Age: 63 Year

DRUGS (1)
  1. AVASTIN [Suspect]
     Route: 065

REACTIONS (3)
  - HAEMORRHAGE [None]
  - UNEVALUABLE EVENT [None]
  - DEATH [None]
